FAERS Safety Report 5923958-8 (Version None)
Quarter: 2008Q3

REPORT INFORMATION
  Report Type: 
  Country: None (occurrence: None)
  Receive Date: 20080909
  Receipt Date: 20011029
  Transmission Date: 20090109
  Serious: Yes (Other)
  Sender: FDA-Public Use
  Company Number: 2001-09-0072

PATIENT
  Age: 44 Year
  Sex: Female

DRUGS (3)
  1. THALOMID [Suspect]
     Indication: MALIGNANT MELANOMA
     Dosage: 100-150 MG, DAILY, ORAL
     Route: 048
     Dates: start: 20010824, end: 20010920
  2. GRANULOCYTE COLONY STIMULATING FACTOR (GRANULOCYTE COLONY STIMULATING [Suspect]
     Indication: MALIGNANT MELANOMA
     Dosage: 100 FEG, SUBCUTANEOUS
     Route: 058
     Dates: start: 20010824, end: 20010906
  3. SENOKOT [Concomitant]

REACTIONS (2)
  - ABORTION SPONTANEOUS [None]
  - PREGNANCY [None]
